FAERS Safety Report 14972088 (Version 1)
Quarter: 2018Q2

REPORT INFORMATION
  Report Type: Spontaneous
  Country: TR (occurrence: TR)
  Receive Date: 20180605
  Receipt Date: 20180605
  Transmission Date: 20180711
  Serious: Yes (Other)
  Sender: FDA-Public Use
  Company Number: TR-ACCORD-067687

PATIENT
  Age: 8 Year
  Sex: Male

DRUGS (3)
  1. FOLINIC ACID [Concomitant]
     Active Substance: LEUCOVORIN
     Dosage: AT 42 HOUR, 48 HOUR AND?54 HOUR
  2. IMMUNOGLOBULIN HUMAN NORMAL [Concomitant]
     Active Substance: HUMAN IMMUNOGLOBULIN G
     Indication: PROPHYLAXIS
     Dosage: 1 G/KG/PER DAY
     Route: 042
  3. METHOTREXATE. [Suspect]
     Active Substance: METHOTREXATE
     Indication: ACUTE LYMPHOCYTIC LEUKAEMIA
     Dosage: 5 G/M2

REACTIONS (13)
  - Hyperaemia [Unknown]
  - Neutropenia [Recovered/Resolved]
  - Blister [Recovered/Resolved]
  - Mouth ulceration [Recovered/Resolved]
  - Pyrexia [Recovered/Resolved]
  - Stevens-Johnson syndrome [Recovered/Resolved]
  - Orthopnoea [Recovered/Resolved]
  - Tachycardia [Recovered/Resolved]
  - Left ventricular dysfunction [Recovered/Resolved]
  - Cardiac failure [Recovered/Resolved]
  - Melaena [Recovered/Resolved]
  - Anal ulcer [Recovered/Resolved]
  - Gastrointestinal haemorrhage [Unknown]
